FAERS Safety Report 18756394 (Version 1)
Quarter: 2021Q1

REPORT INFORMATION
  Report Type: Spontaneous
  Country: US (occurrence: US)
  Receive Date: 20210115
  Receipt Date: 20210115
  Transmission Date: 20210419
  Serious: No
  Sender: FDA-Public Use
  Company Number: None

PATIENT
  Age: 38 Year
  Sex: Female

DRUGS (1)
  1. HUMIRA [Suspect]
     Active Substance: ADALIMUMAB
     Indication: HIDRADENITIS
     Dosage: INJECT 160MG (4 SYRINGES) SUBCUTANEOUSLY ON DAY 1, 80MG (2 SYRINGE)   ON DAY 15,  THEN 40MG ONCE A WEEK
     Route: 058
     Dates: start: 201911

REACTIONS (2)
  - SARS-CoV-2 test positive [None]
  - Therapy interrupted [None]
